FAERS Safety Report 25235030 (Version 1)
Quarter: 2025Q2

REPORT INFORMATION
  Report Type: Spontaneous
  Country: US (occurrence: None)
  Receive Date: 20250423
  Receipt Date: 20250423
  Transmission Date: 20250716
  Serious: Yes (Hospitalization, Other)
  Sender: FDA-CTU
  Company Number: None

PATIENT
  Age: 61 Year
  Sex: Female
  Weight: 67.95 kg

DRUGS (1)
  1. BOTOX [Suspect]
     Active Substance: ONABOTULINUMTOXINA
     Indication: Skin cosmetic procedure
     Dates: start: 20250102, end: 20250102

REACTIONS (4)
  - Drug hypersensitivity [None]
  - Thrombosis [None]
  - Pulmonary thrombosis [None]
  - Weight decreased [None]

NARRATIVE: CASE EVENT DATE: 20250102
